FAERS Safety Report 6938212-5 (Version None)
Quarter: 2010Q3

REPORT INFORMATION
  Report Type: 
  Country: None (occurrence: None)
  Receive Date: 20100824
  Receipt Date: 20100820
  Transmission Date: 20110219
  Serious: Yes (Death, Life-Threatening, Hospitalization, Disabling, Other)
  Sender: FDA-Public Use
  Company Number: PHEH2010US02013

PATIENT
  Sex: Female
  Weight: 61.4 kg

DRUGS (10)
  1. EXJADE [Suspect]
     Dosage: 500 MG, BID
     Route: 048
     Dates: start: 20080219, end: 20080505
  2. EXJADE [Suspect]
     Dosage: 500 MG, BID
     Dates: start: 20090601, end: 20090727
  3. AMITIZA [Concomitant]
     Indication: CONSTIPATION
     Dosage: 24 MEQ, BID
     Route: 048
     Dates: start: 20080501, end: 20090801
  4. METOPROLOL [Concomitant]
     Indication: CARDIAC FAILURE CONGESTIVE
     Dosage: 50 MG EVERY OTHER DAY
     Route: 048
  5. MS CONTIN [Concomitant]
     Indication: METASTATIC CARCINOID TUMOUR
     Dosage: 2 PO BID-30MG
     Route: 048
     Dates: start: 20040101
  6. NEXIUM [Concomitant]
     Indication: GASTROOESOPHAGEAL REFLUX DISEASE
     Dosage: UNK
     Dates: start: 20070101, end: 20091201
  7. ZOCOR [Concomitant]
     Indication: HYPERLIPIDAEMIA
     Dosage: 10 MG DAILY
     Route: 048
     Dates: start: 20070301
  8. LEVOTHYROXINE SODIUM [Concomitant]
     Dosage: 0.075 MG, UNK
     Route: 048
  9. SOLATOL [Concomitant]
     Dosage: 80 MG, BID
     Route: 048
  10. ALDACTONE [Concomitant]
     Indication: CARDIAC FAILURE CONGESTIVE
     Dosage: 50 MG/ DAILY

REACTIONS (22)
  - ANAEMIA OF MALIGNANT DISEASE [None]
  - APHASIA [None]
  - CARDIAC FAILURE CONGESTIVE [None]
  - CARDIAC VALVE VEGETATION [None]
  - CAROTID ARTERY STENOSIS [None]
  - CEREBRAL ARTERY EMBOLISM [None]
  - CEREBROVASCULAR ACCIDENT [None]
  - CONFUSIONAL STATE [None]
  - CONSTIPATION [None]
  - DEVICE RELATED INFECTION [None]
  - DIZZINESS [None]
  - ENDOCARDITIS [None]
  - FALL [None]
  - HIP ARTHROPLASTY [None]
  - HIP FRACTURE [None]
  - MITRAL VALVE INCOMPETENCE [None]
  - MITRAL VALVE REPAIR [None]
  - PARALYSIS [None]
  - PLEURAL EFFUSION [None]
  - RENAL IMPAIRMENT [None]
  - SEPSIS [None]
  - VISION BLURRED [None]
